FAERS Safety Report 8078177-9 (Version None)
Quarter: 2012Q1

REPORT INFORMATION
  Report Type: 
  Country: None (occurrence: None)
  Receive Date: 20120127
  Receipt Date: 20120120
  Transmission Date: 20120608
  Serious: Yes (Death, Hospitalization)
  Sender: FDA-Public Use
  Company Number: DE-ROCHE-1017426

PATIENT
  Sex: Female
  Weight: 84 kg

DRUGS (15)
  1. FLUTICASONE PROPIONATE/SALMETEROL [Concomitant]
     Dosage: 100/500UG
  2. DEXAMETHASONE [Concomitant]
     Dates: start: 20111122, end: 20111123
  3. RAMIPRIL [Concomitant]
     Dosage: 5/25MG
     Route: 048
  4. LEVOTHYROXINE SODIUM [Concomitant]
     Route: 048
  5. EMEND [Concomitant]
     Dates: start: 20111121, end: 20111121
  6. EMEND [Concomitant]
     Dates: start: 20111122, end: 20111123
  7. PACLITAXEL [Suspect]
     Indication: BREAST CANCER
     Route: 042
     Dates: start: 20111114, end: 20111128
  8. ATENOLOL [Concomitant]
     Route: 048
  9. GRANISETRON [Concomitant]
     Dates: start: 20111121, end: 20111121
  10. XELODA [Suspect]
     Indication: BREAST CANCER
     Route: 048
     Dates: start: 20111114
  11. CLEMASTINE FUMARATE [Concomitant]
     Dates: start: 20111121, end: 20111121
  12. GRANISETRON [Concomitant]
     Dates: start: 20111129, end: 20111204
  13. DEXAMETHASONE [Concomitant]
     Dates: start: 20111121, end: 20111121
  14. RAMIPRIL [Concomitant]
     Route: 048
  15. DEXAMETHASONE [Concomitant]
     Dates: start: 20111129, end: 20111204

REACTIONS (1)
  - LEFT VENTRICULAR FAILURE [None]
